FAERS Safety Report 12801949 (Version 1)
Quarter: 2016Q4

REPORT INFORMATION
  Report Type: Spontaneous
  Country: US (occurrence: US)
  Receive Date: 20161003
  Receipt Date: 20161003
  Transmission Date: 20170207
  Serious: No
  Sender: FDA-Public Use
  Company Number: US-JAZZ-2016-US-011976

PATIENT
  Age: 22 Year
  Sex: Female

DRUGS (14)
  1. ALEVE [Concomitant]
     Active Substance: NAPROXEN SODIUM
  2. CYMBALTA [Concomitant]
     Active Substance: DULOXETINE HYDROCHLORIDE
  3. MULTIVITAMIN [Concomitant]
     Active Substance: VITAMINS
  4. PROVIGIL [Concomitant]
     Active Substance: MODAFINIL
  5. ADVIL [Concomitant]
     Active Substance: IBUPROFEN
  6. BIOTIN [Concomitant]
     Active Substance: BIOTIN
  7. VITAMIN D [Concomitant]
     Active Substance: CHOLECALCIFEROL
  8. HYDROCODONE/ACETAMINOPHEN [Concomitant]
     Active Substance: ACETAMINOPHEN\HYDROCODONE
  9. METRONIDAZOLE. [Concomitant]
     Active Substance: METRONIDAZOLE
  10. PROAIR HFA [Concomitant]
     Active Substance: ALBUTEROL SULFATE
  11. XYREM [Suspect]
     Active Substance: SODIUM OXYBATE
     Dosage: 3 G, BID
     Route: 048
     Dates: start: 201601
  12. MEFLOQUINE HCL [Concomitant]
     Active Substance: MEFLOQUINE
  13. GREEN COFFEE BEAN [Concomitant]
  14. XYREM [Suspect]
     Active Substance: SODIUM OXYBATE
     Indication: NARCOLEPSY
     Dosage: 2.25 G, BID
     Route: 048
     Dates: start: 201601, end: 201601

REACTIONS (2)
  - Incorrect dose administered [Unknown]
  - Somnolence [Unknown]

NARRATIVE: CASE EVENT DATE: 2016
